FAERS Safety Report 20489456 (Version 3)
Quarter: 2022Q2

REPORT INFORMATION
  Report Type: Report from Study
  Country: US (occurrence: US)
  Receive Date: 20220218
  Receipt Date: 20220413
  Transmission Date: 20220721
  Serious: Yes (Other)
  Sender: FDA-Public Use
  Company Number: US-ABBVIE-22K-163-4283051-00

PATIENT
  Age: 79 Year
  Sex: Female
  Weight: 61.744 kg

DRUGS (4)
  1. IMBRUVICA [Suspect]
     Active Substance: IBRUTINIB
     Indication: Chronic lymphocytic leukaemia
     Route: 048
  2. IMBRUVICA [Suspect]
     Active Substance: IBRUTINIB
     Indication: B-cell small lymphocytic lymphoma
     Route: 048
     Dates: start: 20181012
  3. IMBRUVICA [Suspect]
     Active Substance: IBRUTINIB
     Indication: Hodgkin^s disease
  4. INSULIN NOS [Concomitant]
     Active Substance: INSULIN NOS
     Indication: Diabetes mellitus

REACTIONS (10)
  - Deafness unilateral [Not Recovered/Not Resolved]
  - Hypoacusis [Unknown]
  - Diabetes mellitus [Unknown]
  - Macular degeneration [Unknown]
  - Cardiac disorder [Not Recovered/Not Resolved]
  - Thrombosis [Unknown]
  - Blood urea increased [Not Recovered/Not Resolved]
  - Off label use [Not Recovered/Not Resolved]
  - Contusion [Unknown]
  - Haemorrhage [Unknown]

NARRATIVE: CASE EVENT DATE: 20210801
